FAERS Safety Report 18435970 (Version 2)
Quarter: 2020Q4

REPORT INFORMATION
  Report Type: Spontaneous
  Country: US (occurrence: US)
  Receive Date: 20201028
  Receipt Date: 20201030
  Transmission Date: 20210114
  Serious: No
  Sender: FDA-Public Use
  Company Number: US-TEVA-2020-US-1842301

PATIENT
  Age: 76 Year
  Sex: Male

DRUGS (4)
  1. CELLCEPT [Concomitant]
     Active Substance: MYCOPHENOLATE MOFETIL\MYCOPHENOLATE MOFETIL HYDROCHLORIDE
  2. CICLOSPORIN TEVA [Suspect]
     Active Substance: CYCLOSPORINE
     Dosage: TOOK HIM DOWN TO 100MG IN THE MORNING AND 25 MG IN THE EVENING/125 MG/DAY
     Route: 065
  3. PREDNISONE. [Concomitant]
     Active Substance: PREDNISONE
  4. CICLOSPORIN TEVA [Suspect]
     Active Substance: CYCLOSPORINE
     Indication: RENAL TRANSPLANT
     Dosage: USING FOR 23 YEARS/TAKE 100MG IN THE MORNING AND 100 MG IN THE EVENING/200 MG/DAY
     Route: 065

REACTIONS (3)
  - Drug level increased [Not Recovered/Not Resolved]
  - Blood creatinine abnormal [Not Recovered/Not Resolved]
  - Drug level decreased [Unknown]

NARRATIVE: CASE EVENT DATE: 2020
